FAERS Safety Report 8156067-0 (Version None)
Quarter: 2012Q1

REPORT INFORMATION
  Report Type: 
  Country: None (occurrence: None)
  Receive Date: 20120222
  Receipt Date: 20120215
  Transmission Date: 20120608
  Serious: Yes (Life-Threatening, Hospitalization, Disabling)
  Sender: FDA-Public Use
  Company Number: US-BAYER-2011-057064

PATIENT
  Age: 28 Year
  Sex: Female

DRUGS (5)
  1. DROSPIRENONE AND ETHINYL ESTRADIOL [Suspect]
     Dosage: UNK
     Dates: start: 20080801, end: 20090601
  2. YAZ [Suspect]
  3. YASMIN [Suspect]
     Dosage: UNK
     Dates: start: 20050601, end: 20080701
  4. GARDASIL [Concomitant]
     Dosage: UNK
     Dates: start: 20070628, end: 20070628
  5. GARDASIL [Concomitant]
     Dosage: UNK
     Dates: start: 20071030, end: 20071030

REACTIONS (9)
  - INJURY [None]
  - GENERAL PHYSICAL HEALTH DETERIORATION [None]
  - ANHEDONIA [None]
  - EMOTIONAL DISTRESS [None]
  - OEDEMA PERIPHERAL [None]
  - THROMBOSIS [None]
  - PAIN [None]
  - ANXIETY [None]
  - LOWER EXTREMITY MASS [None]
